FAERS Safety Report 9344939 (Version 2)
Quarter: 2013Q2

REPORT INFORMATION
  Report Type: Spontaneous
  Country: US (occurrence: US)
  Receive Date: 20130612
  Receipt Date: 20130628
  Transmission Date: 20140414
  Serious: No
  Sender: FDA-Public Use
  Company Number: US-PFIZER INC-2013176724

PATIENT
  Age: 65 Year
  Sex: Female

DRUGS (7)
  1. LYRICA [Suspect]
     Indication: FIBROMYALGIA
     Dosage: 150 MG, 1X/DAY
     Dates: start: 2010
  2. LYRICA [Suspect]
     Indication: RESTLESS LEGS SYNDROME
     Dosage: 300 MG, 1X/DAY
     Dates: start: 2010
  3. GABAPENTIN [Concomitant]
     Indication: FIBROMYALGIA
     Dosage: 300 MG, 1X/DAY
  4. TESSALON PERLE [Concomitant]
     Indication: COUGH
     Dosage: UNK
  5. OXYGEN [Concomitant]
     Indication: SLEEP APNOEA SYNDROME
     Dosage: UNK
     Dates: start: 2009
  6. VICODIN [Concomitant]
     Indication: PAIN
     Dosage: HYDROCODONE 7.5/ ACETAMINOPHEN 500 MG, UNK
  7. VICODIN [Concomitant]
     Indication: RESTLESSNESS

REACTIONS (4)
  - Off label use [Not Recovered/Not Resolved]
  - Drug dose omission [Recovered/Resolved]
  - Insomnia [Unknown]
  - Tremor [Unknown]
